FAERS Safety Report 5411470-4 (Version None)
Quarter: 2007Q3

REPORT INFORMATION
  Report Type: 
  Country: None (occurrence: None)
  Receive Date: 20070810
  Receipt Date: 20070802
  Transmission Date: 20080115
  Serious: Yes (Life-Threatening, Hospitalization)
  Sender: FDA-Public Use
  Company Number: TR-SHR-02/01208-CDS

PATIENT
  Age: 42 Year
  Sex: Female
  Weight: 79 kg

DRUGS (1)
  1. MAGNEVIST [Suspect]
     Dosage: 15 ML
     Route: 042
     Dates: start: 20010320, end: 20020321

REACTIONS (9)
  - ACUTE ABDOMEN [None]
  - ALANINE AMINOTRANSFERASE INCREASED [None]
  - ASPARTATE AMINOTRANSFERASE INCREASED [None]
  - BLOOD PRESSURE INCREASED [None]
  - CHOLELITHIASIS [None]
  - HEART RATE INCREASED [None]
  - PANCREATITIS NECROTISING [None]
  - VOMITING [None]
  - WHITE BLOOD CELL COUNT INCREASED [None]
